FAERS Safety Report 8621922-1 (Version None)
Quarter: 2012Q3

REPORT INFORMATION
  Report Type: 
  Country: None (occurrence: None)
  Receive Date: 20120822
  Receipt Date: 20120822
  Transmission Date: 20120928
  Serious: Yes (Life-Threatening)
  Sender: FDA-Public Use
  Company Number: None

PATIENT
  Age: 57 Year
  Sex: Female
  Weight: 108 kg

DRUGS (1)
  1. CEFEPIME [Suspect]
     Indication: ABDOMINAL INFECTION
     Dosage: 2G Q12H IV BOLUS
     Route: 040
     Dates: start: 20120801, end: 20120806

REACTIONS (4)
  - RENAL FAILURE ACUTE [None]
  - STATUS EPILEPTICUS [None]
  - DRUG RESISTANCE [None]
  - MULTI-ORGAN FAILURE [None]
